FAERS Safety Report 11564971 (Version 1)
Quarter: 2015Q3

REPORT INFORMATION
  Report Type: Report from Study
  Country: US (occurrence: US)
  Receive Date: 20150928
  Receipt Date: 20150928
  Transmission Date: 20151125
  Serious: No
  Sender: FDA-Public Use
  Company Number: US-EXELIXIS-CABO-15005639

PATIENT
  Sex: Male

DRUGS (2)
  1. TRAZODONE [Concomitant]
     Active Substance: TRAZODONE HYDROCHLORIDE
     Dosage: UNK
  2. COMETRIQ [Suspect]
     Active Substance: CABOZANTINIB S-MALATE
     Indication: THYROID CANCER
     Dosage: 140 MG, QD
     Route: 048
     Dates: start: 20150804, end: 201508

REACTIONS (7)
  - Stomatitis [Unknown]
  - Oropharyngeal pain [Unknown]
  - Hypertension [Unknown]
  - Insomnia [Unknown]
  - Weight decreased [Unknown]
  - Vibratory sense increased [Unknown]
  - Constipation [Unknown]
